FAERS Safety Report 12305270 (Version 2)
Quarter: 2016Q2

REPORT INFORMATION
  Report Type: Spontaneous
  Country: US (occurrence: US)
  Receive Date: 20160426
  Receipt Date: 20160502
  Transmission Date: 20160815
  Serious: Yes (Other)
  Sender: FDA-Public Use
  Company Number: US-TEVA-654754ACC

PATIENT
  Age: 26 Year
  Sex: Female
  Weight: 53.57 kg

DRUGS (3)
  1. PLAN B ONE-STEP [Suspect]
     Active Substance: LEVONORGESTREL
     Dates: start: 20160319, end: 20160319
  2. PLAN B ONE-STEP [Suspect]
     Active Substance: LEVONORGESTREL
     Dates: start: 20160321, end: 20160321
  3. PLAN B ONE-STEP [Suspect]
     Active Substance: LEVONORGESTREL
     Indication: POST COITAL CONTRACEPTION
     Dates: start: 20160318, end: 20160318

REACTIONS (3)
  - Uterine pain [Recovered/Resolved]
  - Pregnancy after post coital contraception [Unknown]
  - Uterine spasm [Recovered/Resolved]

NARRATIVE: CASE EVENT DATE: 20160327
